FAERS Safety Report 5525299-X (Version None)
Quarter: 2007Q4

REPORT INFORMATION
  Report Type: 
  Country: None (occurrence: None)
  Receive Date: 20071126
  Receipt Date: 20071113
  Transmission Date: 20080405
  Serious: Yes (Other)
  Sender: FDA-Public Use
  Company Number: FR-ROCHE-533168

PATIENT

DRUGS (3)
  1. CAPECITABINE [Suspect]
     Dosage: DOSE LEVELS: 1:1,700; 2:1,700; 3:2,000; 4:2,000 DAYS 1-15, MORNING AND EVENING
     Route: 048
  2. IROFULVEN [Suspect]
     Dosage: ADMINISTERED AS 30 MINUTE INTRAVENOUS INFUSIONS THROUGH A CENTRAL VENOUS CATHETER ON DAYS 1 AND 15 +
     Route: 042
  3. ANTIEMETIC [Concomitant]
     Indication: PROPHYLAXIS OF NAUSEA AND VOMITING
     Dosage: THE PATIENTS ALSO RECEIVED PROPHYLACTIC ANTIEMETCS CONSISTING OF A 5-HYDROXYTRYPTAMINE (5HT3) RECEP+

REACTIONS (5)
  - ELECTROLYTE IMBALANCE [None]
  - GASTROINTESTINAL TOXICITY [None]
  - INFECTION [None]
  - THROMBOCYTOPENIA [None]
  - VISION BLURRED [None]
